FAERS Safety Report 9659515 (Version 2)
Quarter: 2013Q4

REPORT INFORMATION
  Report Type: Report from Study
  Country: JP (occurrence: JP)
  Receive Date: 20131031
  Receipt Date: 20131107
  Transmission Date: 20140711
  Serious: Yes (Hospitalization, Other)
  Sender: FDA-Public Use
  Company Number: PHHO2013JP014034

PATIENT
  Age: 70 Year
  Sex: Male

DRUGS (8)
  1. AMN107 [Suspect]
     Indication: CHRONIC MYELOID LEUKAEMIA
     Dosage: 300 MG, BID
     Route: 048
     Dates: start: 20130501, end: 20131003
  2. HANP [Concomitant]
     Dates: start: 20130812
  3. ARTIST [Concomitant]
     Dosage: 3.75 MG, DAILY
     Route: 048
     Dates: start: 20130813
  4. AZILVA [Concomitant]
     Route: 048
     Dates: start: 20130813
  5. DOBUPUM [Concomitant]
     Indication: HYPERTENSION
     Dates: start: 20130816
  6. SELARA [Concomitant]
     Route: 048
     Dates: start: 20130818
  7. DIART [Concomitant]
     Route: 048
     Dates: start: 20130818
  8. BAYASPIRIN [Concomitant]
     Route: 048
     Dates: start: 20130818

REACTIONS (3)
  - Myocardial infarction [Recovering/Resolving]
  - Cardiac failure [Unknown]
  - Pericarditis [Unknown]
